FAERS Safety Report 19232021 (Version 8)
Quarter: 2024Q3

REPORT INFORMATION
  Report Type: Report from Study
  Country: CA (occurrence: CA)
  Receive Date: 20210507
  Receipt Date: 20240904
  Transmission Date: 20241017
  Serious: Yes (Other)
  Sender: TAKEDA
  Company Number: CA-TAKEDA-2021TUS028574

PATIENT
  Sex: Female

DRUGS (5)
  1. VEDOLIZUMAB [Suspect]
     Active Substance: VEDOLIZUMAB
     Indication: Colitis ulcerative
     Dosage: 300 MILLIGRAM
     Route: 042
     Dates: start: 20210416
  2. Cortiment [Concomitant]
     Dosage: 9 MILLIGRAM
  3. PREDNISONE [Concomitant]
     Active Substance: PREDNISONE
     Dosage: UNK
  4. IMURAN [Concomitant]
     Active Substance: AZATHIOPRINE
     Dosage: UNK
  5. Salofalk [Concomitant]
     Dosage: UNK

REACTIONS (6)
  - Colitis ulcerative [Unknown]
  - Diarrhoea [Unknown]
  - Frequent bowel movements [Unknown]
  - Stress [Unknown]
  - Blood magnesium increased [Unknown]
  - Nausea [Unknown]
